FAERS Safety Report 14348367 (Version 4)
Quarter: 2018Q3

REPORT INFORMATION
  Report Type: Spontaneous
  Country: US (occurrence: US)
  Receive Date: 20180103
  Receipt Date: 20180921
  Transmission Date: 20181010
  Serious: Yes (Death, Life-Threatening, Hospitalization)
  Sender: FDA-Public Use
  Company Number: US-ACTELION-A-NJ2017-164824

PATIENT
  Age: 68 Year
  Sex: Female

DRUGS (9)
  1. ADCIRCA [Concomitant]
     Active Substance: TADALAFIL
     Dosage: 20 MG, BID
     Dates: start: 20151120
  2. AMLODIPINE [Concomitant]
     Active Substance: AMLODIPINE BESYLATE
  3. ASPIRIN. [Concomitant]
     Active Substance: ASPIRIN
  4. TRACLEER [Suspect]
     Active Substance: BOSENTAN
     Indication: PULMONARY ARTERIAL HYPERTENSION
     Dosage: 125 MG, BID
     Route: 048
     Dates: start: 20130426, end: 20180906
  5. INSULIN [Concomitant]
     Active Substance: INSULIN NOS
  6. RENVELA [Concomitant]
     Active Substance: SEVELAMER CARBONATE
  7. CARVEDILOL. [Concomitant]
     Active Substance: CARVEDILOL
  8. LOSARTAN. [Concomitant]
     Active Substance: LOSARTAN
  9. RENALTABS [Concomitant]

REACTIONS (7)
  - Incarcerated hernia [Fatal]
  - Cardiac arrest [Fatal]
  - Myocardial infarction [Fatal]
  - Metastases to lung [Not Recovered/Not Resolved]
  - Disease complication [Fatal]
  - Pulmonary arterial hypertension [Fatal]
  - Pneumonia [Recovered/Resolved]

NARRATIVE: CASE EVENT DATE: 2017
